FAERS Safety Report 10129955 (Version 1)
Quarter: 2014Q2

REPORT INFORMATION
  Report Type: Spontaneous
  Country: US (occurrence: None)
  Receive Date: 20140424
  Receipt Date: 20140424
  Transmission Date: 20141212
  Serious: Yes (Hospitalization)
  Sender: FDA-Public Use
  Company Number: None

PATIENT
  Age: 73 Year
  Sex: Female

DRUGS (1)
  1. ACETAMINOPHEN/HYDROCODONE [Suspect]
     Indication: PAIN
     Dosage: 1 TAB, PRN, PO
     Route: 048
     Dates: start: 20140417, end: 20140419

REACTIONS (4)
  - Agitation [None]
  - Confusional state [None]
  - Fall [None]
  - Humerus fracture [None]
